FAERS Safety Report 4481267-0 (Version None)
Quarter: 2004Q4

REPORT INFORMATION
  Report Type: 
  Country: None (occurrence: None)
  Receive Date: 20040923
  Receipt Date: 20040804
  Transmission Date: 20050328
  Serious: No
  Sender: FDA-Public Use
  Company Number: USA030435003

PATIENT
  Age: 82 Year
  Sex: Female
  Weight: 51 kg

DRUGS (10)
  1. FORTEO [Suspect]
     Indication: OSTEOPOROSIS
     Dosage: 20 UG DAY
     Dates: start: 20040610, end: 20040716
  2. EVISTA [Suspect]
     Indication: OSTEOPOROSIS
     Dosage: 60 MG/DAY
     Dates: start: 20021001, end: 20030317
  3. LIPITOR [Concomitant]
  4. ATENOLOL [Concomitant]
  5. ENTERIC ASPIRIN (ACETYLSALICYLIC ACID) [Concomitant]
  6. VITAMIN B COMPLEX CAP [Concomitant]
  7. VITAMIN A [Concomitant]
  8. ALLEGRA [Concomitant]
  9. MULTI-VITAMIN [Concomitant]
  10. ASPIRIN [Concomitant]

REACTIONS (5)
  - ABDOMINAL PAIN UPPER [None]
  - ARTHRALGIA [None]
  - CONSTIPATION [None]
  - ERYTHEMA [None]
  - OEDEMA PERIPHERAL [None]
